FAERS Safety Report 13831225 (Version 2)
Quarter: 2017Q4

REPORT INFORMATION
  Report Type: Spontaneous
  Country: FR (occurrence: FR)
  Receive Date: 20170803
  Receipt Date: 20171005
  Transmission Date: 20180320
  Serious: Yes (Life-Threatening, Hospitalization)
  Sender: FDA-Public Use
  Company Number: PHHY2017FR114010

PATIENT
  Age: 27 Year
  Sex: Male

DRUGS (2)
  1. EXJADE [Suspect]
     Active Substance: DEFERASIROX
     Indication: IRON OVERLOAD
     Dosage: 2 G, QD
     Route: 048
     Dates: start: 201510, end: 20170608
  2. EXJADE [Suspect]
     Active Substance: DEFERASIROX
     Dosage: UNK
     Route: 048
     Dates: start: 20170713, end: 20170717

REACTIONS (15)
  - Cholestasis [Unknown]
  - Ulcer [Unknown]
  - Diarrhoea [Unknown]
  - Hypoglycaemia [Recovered/Resolved]
  - Status epilepticus [Unknown]
  - Faeces discoloured [Unknown]
  - Coma [Recovered/Resolved with Sequelae]
  - Hyperammonaemia [Recovered/Resolved]
  - Hyperlactacidaemia [Unknown]
  - Flank pain [Unknown]
  - Asthenia [Unknown]
  - Tachycardia [Unknown]
  - Infection [Unknown]
  - Hepatic failure [Recovering/Resolving]
  - Brain injury [Unknown]

NARRATIVE: CASE EVENT DATE: 2017
